FAERS Safety Report 21974331 (Version 1)
Quarter: 2023Q1

REPORT INFORMATION
  Report Type: Spontaneous
  Country: US (occurrence: US)
  Receive Date: 20230209
  Receipt Date: 20230209
  Transmission Date: 20230418
  Serious: No
  Sender: FDA-Public Use
  Company Number: US-MYLANLABS-2023M1011383

PATIENT
  Age: 57 Year
  Sex: Male

DRUGS (1)
  1. SEMGLEE (INSULIN GLARGINE-YFGN) [Suspect]
     Active Substance: INSULIN GLARGINE-YFGN
     Indication: Type 2 diabetes mellitus
     Dosage: 22 INTERNATIONAL UNIT, BID (TWICE DAILY ONE IN THE MORNING AND AT NIGHT)
     Route: 058
     Dates: start: 20230122

REACTIONS (4)
  - Weight increased [Unknown]
  - Wrong technique in product usage process [Unknown]
  - Product storage error [Unknown]
  - Device leakage [Unknown]

NARRATIVE: CASE EVENT DATE: 20230130
